FAERS Safety Report 8920417 (Version 1)
Quarter: 2012Q4

REPORT INFORMATION
  Report Type: 
  Country: FR (occurrence: FR)
  Receive Date: 20121121
  Receipt Date: 20121121
  Transmission Date: 20130627
  Serious: Yes (Hospitalization)
  Sender: FDA-Public Use
  Company Number: FR-B.I. PHARMACEUTICALS,INC./RIDGEFIELD-2012-FF-01626FF

PATIENT
  Age: 73 Year
  Sex: Female

DRUGS (5)
  1. PRADAXA [Suspect]
     Indication: ATRIAL FIBRILLATION
     Dosage: 220 mg
     Route: 048
     Dates: start: 201210, end: 20121112
  2. BISOPROLOL [Concomitant]
  3. FLECAINE [Concomitant]
  4. INIPOMP [Concomitant]
  5. LEVOTHYROX [Concomitant]

REACTIONS (3)
  - Vertigo [Recovered/Resolved]
  - Amnesia [Recovered/Resolved]
  - Fatigue [Unknown]
